FAERS Safety Report 7131556-6 (Version None)
Quarter: 2010Q4

REPORT INFORMATION
  Report Type: 
  Country: None (occurrence: None)
  Receive Date: 20101201
  Receipt Date: 20101124
  Transmission Date: 20110411
  Serious: Yes (Death, Hospitalization)
  Sender: FDA-Public Use
  Company Number: PH-BAXTER-2010BH028409

PATIENT
  Age: 72 Year
  Sex: Female

DRUGS (4)
  1. DIANEAL [Suspect]
     Indication: PERITONEAL DIALYSIS
     Route: 033
     Dates: start: 20100604
  2. DIANEAL [Suspect]
     Route: 033
     Dates: start: 20100604
  3. DIANEAL [Suspect]
     Route: 033
     Dates: start: 20100604
  4. DIANEAL [Suspect]
     Route: 033
     Dates: start: 20100604

REACTIONS (6)
  - CARDIO-RESPIRATORY ARREST [None]
  - NAUSEA [None]
  - PERITONEAL DIALYSIS COMPLICATION [None]
  - PERITONITIS [None]
  - PYREXIA [None]
  - VOMITING [None]
